FAERS Safety Report 8804111 (Version 2)
Quarter: 2013Q3

REPORT INFORMATION
  Report Type: Spontaneous
  Country: IE (occurrence: IE)
  Receive Date: 20120924
  Receipt Date: 20130828
  Transmission Date: 20140515
  Serious: Yes (Hospitalization)
  Sender: FDA-Public Use
  Company Number: IE-JNJFOC-20120906445

PATIENT
  Sex: Female

DRUGS (6)
  1. SIMPONI [Suspect]
     Indication: PSORIATIC ARTHROPATHY
     Route: 058
     Dates: start: 20120815, end: 20130301
  2. DIFENE [Concomitant]
     Route: 065
  3. FOSAMAX [Concomitant]
     Route: 065
  4. GALFER [Concomitant]
     Route: 065
  5. LYRICA [Concomitant]
     Route: 065
  6. SALAZOPYRIN [Concomitant]
     Route: 065

REACTIONS (2)
  - Haemoglobin decreased [Not Recovered/Not Resolved]
  - Drug ineffective [Unknown]
